FAERS Safety Report 17704167 (Version 1)
Quarter: 2020Q2

REPORT INFORMATION
  Report Type: Spontaneous
  Country: US (occurrence: US)
  Receive Date: 20200423
  Receipt Date: 20200423
  Transmission Date: 20200714
  Serious: No
  Sender: FDA-Public Use
  Company Number: None

PATIENT
  Age: 53 Year
  Sex: Female

DRUGS (1)
  1. NUCALA [Suspect]
     Active Substance: MEPOLIZUMAB
     Indication: ASTHMA
     Route: 058
     Dates: start: 20191217, end: 20200408

REACTIONS (5)
  - Dysarthria [None]
  - Refusal of treatment by patient [None]
  - Seizure [None]
  - Muscle twitching [None]
  - Muscle spasms [None]

NARRATIVE: CASE EVENT DATE: 20200408
